FAERS Safety Report 9653200 (Version 3)
Quarter: 2014Q2

REPORT INFORMATION
  Report Type: Spontaneous
  Country: US (occurrence: US)
  Receive Date: 20131029
  Receipt Date: 20140408
  Transmission Date: 20141212
  Serious: Yes (Hospitalization, Other)
  Sender: FDA-Public Use
  Company Number: US-PFIZER INC-2013307033

PATIENT
  Age: 35 Year
  Sex: Male
  Weight: 100 kg

DRUGS (4)
  1. LYRICA [Suspect]
     Indication: FIBROMYALGIA
     Dosage: 75MG-150MG, 2X/DAY
  2. LYRICA [Suspect]
     Indication: PAIN
  3. PERCOCET [Suspect]
     Indication: PAIN
     Dosage: UNK
  4. VALIUM [Concomitant]
     Indication: MUSCLE SPASMS
     Dosage: UNK

REACTIONS (3)
  - Intervertebral disc degeneration [Unknown]
  - Back disorder [Unknown]
  - Drug ineffective [Unknown]
